FAERS Safety Report 6843840-1 (Version None)
Quarter: 2010Q3

REPORT INFORMATION
  Report Type: 
  Country: None (occurrence: None)
  Receive Date: 20100715
  Receipt Date: 20100702
  Transmission Date: 20110219
  Serious: Yes (Hospitalization, Other)
  Sender: FDA-Public Use
  Company Number: PHHY2010MX43860

PATIENT
  Age: 64 Year
  Sex: Female

DRUGS (3)
  1. ACLASTA [Suspect]
     Indication: OSTEOPOROSIS
     Dosage: 1 INJECTION (5 MG/100ML) PER YEAR
     Route: 042
     Dates: start: 20100619
  2. VONTROL [Concomitant]
  3. KETOROLAC [Concomitant]

REACTIONS (8)
  - DIZZINESS [None]
  - DYSSTASIA [None]
  - EAR PAIN [None]
  - HEADACHE [None]
  - HEART RATE DECREASED [None]
  - HYPOTENSION [None]
  - NAUSEA [None]
  - TINNITUS [None]
